FAERS Safety Report 9955242 (Version 1)
Quarter: 2014Q1

REPORT INFORMATION
  Report Type: Spontaneous
  Country: US (occurrence: US)
  Receive Date: 20140304
  Receipt Date: 20140304
  Transmission Date: 20141002
  Serious: Yes (Other)
  Sender: FDA-Public Use
  Company Number: US-B.I. PHARMACEUTICALS,INC./RIDGEFIELD-2014-BI-08364BP

PATIENT
  Age: 78 Year
  Sex: Female

DRUGS (7)
  1. SPIRIVA [Suspect]
     Indication: CHRONIC OBSTRUCTIVE PULMONARY DISEASE
     Dosage: 18 MCG
     Route: 055
     Dates: start: 20140219
  2. METOPROLOL [Concomitant]
     Dosage: 100 MG
     Route: 048
  3. CLOPIDOGREL [Concomitant]
     Dosage: 75 MG
     Route: 048
  4. BACLOFEN [Concomitant]
     Dosage: 20 MG
     Route: 048
  5. RAMIPRIL [Concomitant]
     Dosage: 5 MG
     Route: 048
  6. TRAMADOL [Concomitant]
     Dosage: 150 MG
     Route: 048
  7. CRESTOR [Concomitant]
     Dosage: 5 MG
     Route: 048

REACTIONS (4)
  - Renal artery occlusion [Not Recovered/Not Resolved]
  - Atrial fibrillation [Not Recovered/Not Resolved]
  - Hypertension [Recovered/Resolved]
  - Heart rate increased [Recovered/Resolved]
